FAERS Safety Report 8405284-0 (Version None)
Quarter: 2012Q2

REPORT INFORMATION
  Report Type: 
  Country: None (occurrence: None)
  Receive Date: 20120603
  Receipt Date: 20120531
  Transmission Date: 20120825
  Serious: Yes (Other)
  Sender: FDA-Public Use
  Company Number: RU-AMGEN-RUSSP2012028115

PATIENT
  Sex: Female
  Weight: 70 kg

DRUGS (2)
  1. VECTIBIX [Suspect]
     Indication: SMALL INTESTINE CARCINOMA
     Dosage: 500 MUG, Q2WK
     Dates: start: 20120420
  2. VECTIBIX [Suspect]
     Indication: METASTASES TO LIVER

REACTIONS (2)
  - ACCIDENTAL OVERDOSE [None]
  - SKIN TOXICITY [None]
